FAERS Safety Report 8305425-X (Version None)
Quarter: 2012Q2

REPORT INFORMATION
  Report Type: 
  Country: None (occurrence: None)
  Receive Date: 20120423
  Receipt Date: 20120417
  Transmission Date: 20120825
  Serious: Yes (Hospitalization)
  Sender: FDA-Public Use
  Company Number: PHHY2012US032535

PATIENT
  Age: 22 Year
  Sex: Female

DRUGS (2)
  1. DILANTIN [Suspect]
  2. LEVETIRACETAM [Suspect]
     Indication: CONVULSION

REACTIONS (11)
  - COAGULOPATHY [None]
  - PYREXIA [None]
  - TACHYCARDIA [None]
  - HEPATIC FAILURE [None]
  - RASH PRURITIC [None]
  - ABDOMINAL DISTENSION [None]
  - FACE OEDEMA [None]
  - DRUG RASH WITH EOSINOPHILIA AND SYSTEMIC SYMPTOMS [None]
  - MUCOSAL DRYNESS [None]
  - JAUNDICE [None]
  - ABDOMINAL PAIN [None]
